FAERS Safety Report 6539800 (Version 7)
Quarter: 2015Q4

REPORT INFORMATION
  Report Type: Spontaneous
  Country: US (occurrence: US)
  Receive Date: 20080131
  Receipt Date: 20151109
  Transmission Date: 20160305
  Serious: Yes (Hospitalization)
  Sender: FDA-Public Use
  Company Number: US-JNJFOC-20080106062

PATIENT
  Sex: Female
  Weight: 87.09 kg

DRUGS (3)
  1. HALDOL [Suspect]
     Active Substance: HALOPERIDOL
     Indication: SCHIZOPHRENIA
     Route: 030
     Dates: start: 20060804, end: 200611
  2. DEPAKOTE [Suspect]
     Active Substance: DIVALPROEX SODIUM
     Indication: SCHIZOPHRENIA
     Dates: start: 2006, end: 200611
  3. HALDOL [Suspect]
     Active Substance: HALOPERIDOL
     Indication: SCHIZOPHRENIA
     Route: 030
     Dates: start: 20060809, end: 20061123

REACTIONS (26)
  - Dysphagia [Not Recovered/Not Resolved]
  - Adverse event [Unknown]
  - Negativism [Not Recovered/Not Resolved]
  - Alopecia [Unknown]
  - Rash [Unknown]
  - Nausea [Unknown]
  - Dyskinesia [Not Recovered/Not Resolved]
  - Deformity [Not Recovered/Not Resolved]
  - Thinking abnormal [Recovered/Resolved]
  - Pelvic pain [Unknown]
  - Restlessness [Unknown]
  - Suicidal ideation [Recovered/Resolved]
  - Catatonia [Unknown]
  - Retching [Not Recovered/Not Resolved]
  - Restless legs syndrome [Recovered/Resolved]
  - Withdrawal syndrome [Recovered/Resolved]
  - Dysuria [Unknown]
  - Eye irritation [Unknown]
  - Emotional disorder [Unknown]
  - Discomfort [Not Recovered/Not Resolved]
  - Tardive dyskinesia [Unknown]
  - Anaemia [Unknown]
  - Glaucoma [Unknown]
  - Candida infection [Unknown]
  - Weight increased [Unknown]
  - Hallucination, auditory [Unknown]

NARRATIVE: CASE EVENT DATE: 2006
